FAERS Safety Report 11624395 (Version 1)
Quarter: 2015Q4

REPORT INFORMATION
  Report Type: Spontaneous
  Country: US (occurrence: None)
  Receive Date: 20151009
  Receipt Date: 20151009
  Transmission Date: 20160304
  Serious: Yes (Other)
  Sender: FDA-Public Use
  Company Number: None

PATIENT
  Age: 69 Year
  Sex: Female
  Weight: 61.24 kg

DRUGS (13)
  1. LEVAQUIN [Suspect]
     Active Substance: LEVOFLOXACIN
     Indication: UPPER RESPIRATORY TRACT INFECTION
     Dosage: 1 PILL
     Route: 048
     Dates: start: 20150223, end: 20150225
  2. ZYRTEC [Concomitant]
     Active Substance: CETIRIZINE HYDROCHLORIDE
  3. CITRUCEL [Concomitant]
     Active Substance: METHYLCELLULOSE (4000 MPA.S)
  4. VITAMIN B [Concomitant]
     Active Substance: VITAMIN B
  5. IPRATROPIUM [Concomitant]
     Active Substance: IPRATROPIUM
  6. FLONASE [Concomitant]
     Active Substance: FLUTICASONE PROPIONATE
  7. CALCIUM [Concomitant]
     Active Substance: CALCIUM
  8. LIPITOR [Concomitant]
     Active Substance: ATORVASTATIN CALCIUM
  9. VITAMIN D [Concomitant]
     Active Substance: CHOLECALCIFEROL
  10. ATIVAN [Concomitant]
     Active Substance: LORAZEPAM
  11. WELLBUTRIN [Concomitant]
     Active Substance: BUPROPION HYDROCHLORIDE
  12. MVI [Concomitant]
     Active Substance: VITAMINS
  13. VITAMIN E [Concomitant]
     Active Substance: .ALPHA.-TOCOPHEROL

REACTIONS (7)
  - Abnormal dreams [None]
  - Paraesthesia [None]
  - Vaginal infection [None]
  - Pruritus [None]
  - Arthritis [None]
  - Tendon rupture [None]
  - Gait disturbance [None]

NARRATIVE: CASE EVENT DATE: 20150226
